FAERS Safety Report 9119880 (Version 1)
Quarter: 2013Q1

REPORT INFORMATION
  Report Type: Spontaneous
  Country: US (occurrence: US)
  Receive Date: 20130226
  Receipt Date: 20130226
  Transmission Date: 20140127
  Serious: No
  Sender: FDA-Public Use
  Company Number: US-009507513-1302USA012069

PATIENT
  Sex: Male

DRUGS (4)
  1. CORICIDIN HBP COUGH AND COLD [Suspect]
     Indication: COUGH
     Dosage: UNK, UNKNOWN
     Route: 048
  2. CORICIDIN HBP COUGH AND COLD [Suspect]
     Indication: SNEEZING
  3. CORICIDIN HBP COUGH AND COLD [Suspect]
     Indication: RHINORRHOEA
  4. MAGNESIUM OXIDE [Concomitant]
     Indication: PRODUCT USED FOR UNKNOWN INDICATION
     Dosage: UNK, UNKNOWN

REACTIONS (1)
  - Somnolence [Unknown]
